FAERS Safety Report 21979272 (Version 3)
Quarter: 2025Q3

REPORT INFORMATION
  Report Type: Report from Study
  Country: US (occurrence: US)
  Receive Date: 20230210
  Receipt Date: 20250715
  Transmission Date: 20251021
  Serious: Yes (Hospitalization, Other)
  Sender: NOVARTIS
  Company Number: US-002147023-NVSC2023US025800

PATIENT
  Age: 75 Year
  Sex: Male

DRUGS (3)
  1. SCEMBLIX [Suspect]
     Active Substance: ASCIMINIB HYDROCHLORIDE
     Indication: Product used for unknown indication
     Dosage: 20 MG, BID
     Route: 065
  2. SCEMBLIX [Suspect]
     Active Substance: ASCIMINIB HYDROCHLORIDE
     Route: 065
  3. SCEMBLIX [Suspect]
     Active Substance: ASCIMINIB HYDROCHLORIDE
     Route: 048
     Dates: start: 20230128

REACTIONS (4)
  - Transient ischaemic attack [Unknown]
  - Brain neoplasm [Unknown]
  - Intracranial pressure increased [Unknown]
  - Dysarthria [Unknown]

NARRATIVE: CASE EVENT DATE: 20230101
